FAERS Safety Report 10373381 (Version 2)
Quarter: 2014Q3

REPORT INFORMATION
  Report Type: Spontaneous
  Country: US (occurrence: US)
  Receive Date: 20140808
  Receipt Date: 20140808
  Transmission Date: 20150326
  Serious: No
  Sender: FDA-Public Use
  Company Number: US-BRISTOL-MYERS SQUIBB COMPANY-20554317

PATIENT
  Age: 47 Year
  Sex: Male

DRUGS (1)
  1. SPRYCEL [Suspect]
     Active Substance: DASATINIB
     Indication: LEUKOPENIA
     Dosage: DOSE FORM:TABS
     Route: 048
     Dates: start: 20091223

REACTIONS (2)
  - Pleural effusion [Not Recovered/Not Resolved]
  - Off label use [Unknown]
